FAERS Safety Report 6340295-0 (Version None)
Quarter: 2009Q3

REPORT INFORMATION
  Report Type: 
  Country: None (occurrence: None)
  Receive Date: 20090902
  Receipt Date: 20090820
  Transmission Date: 20100115
  Serious: Yes (Other)
  Sender: FDA-Public Use
  Company Number: 2009AP003407

PATIENT
  Sex: Female

DRUGS (3)
  1. CITALOPRAM HYDROBROMIDE [Suspect]
     Indication: ANXIETY
     Dosage: 50 MG; UNKNOW 10 MG; UNKNOWN 15 MG; UNKNOWN
     Dates: end: 20090709
  2. CITALOPRAM HYDROBROMIDE [Suspect]
     Indication: ANXIETY
     Dosage: 50 MG; UNKNOW 10 MG; UNKNOWN 15 MG; UNKNOWN
     Dates: start: 20090101
  3. ERYTHROMYCIN [Suspect]
     Indication: ACNE
     Dosage: 250 MG; UNKNOWN; PO; UNKNOWN
     Route: 048
     Dates: start: 20090601, end: 20090709

REACTIONS (6)
  - AGITATION [None]
  - HEADACHE [None]
  - MUSCLE TWITCHING [None]
  - RESTLESSNESS [None]
  - SEROTONIN SYNDROME [None]
  - TREMOR [None]
